FAERS Safety Report 18072305 (Version 1)
Quarter: 2020Q3

REPORT INFORMATION
  Report Type: Spontaneous
  Country: US (occurrence: US)
  Receive Date: 20200726
  Receipt Date: 20200726
  Transmission Date: 20201103
  Serious: Yes (Other)
  Sender: FDA-Public Use
  Company Number: None

PATIENT
  Age: 74 Year
  Sex: Male
  Weight: 110.25 kg

DRUGS (22)
  1. FEASP?FEFUM?SUC?C?THRE?B12?FA [Concomitant]
  2. PRILOSEC OTC [Concomitant]
     Active Substance: OMEPRAZOLE MAGNESIUM
  3. DO PROTEIN POWDER [Concomitant]
  4. FINASTERIDE. [Concomitant]
     Active Substance: FINASTERIDE
  5. TAMSULOSIN HCL [Concomitant]
     Active Substance: TAMSULOSIN HYDROCHLORIDE
  6. CMA SYNTHROID [Concomitant]
  7. POTASSIUM CITRATE 10 MEQ [Suspect]
     Active Substance: POTASSIUM CITRATE
     Indication: RENAL LITHIASIS PROPHYLAXIS
     Dosage: ?          QUANTITY:6 TABLET(S);OTHER FREQUENCY:6 PER DAY;?
     Route: 048
  8. MULTIGEN PLUS [Concomitant]
  9. OMEPRAZOLE. [Concomitant]
     Active Substance: OMEPRAZOLE
  10. LEVOTHYROXINE SODIUM. [Concomitant]
     Active Substance: LEVOTHYROXINE SODIUM
  11. SERTRALINE HCL [Concomitant]
     Active Substance: SERTRALINE HYDROCHLORIDE
  12. LONOX [Concomitant]
     Active Substance: ATROPINE SULFATE\DIPHENOXYLATE HYDROCHLORIDE
  13. CMA TAMSULOSIN HCL [Concomitant]
  14. LOMOTIL [Concomitant]
     Active Substance: ATROPINE SULFATE\DIPHENOXYLATE HYDROCHLORIDE
  15. METRONIDAZOLE OINTMENT [Concomitant]
  16. NIFEDIPINE GEL [Concomitant]
  17. RIFAXIMIN. [Concomitant]
     Active Substance: RIFAXIMIN
  18. ZINC. [Concomitant]
     Active Substance: ZINC
  19. GENERAL VITAMINS [Concomitant]
  20. CMA XIFAXAN [Concomitant]
  21. DO DIPHENOCYLATE?ATROPI [Concomitant]
  22. DO MEN^S FUSION CHEWABLES [Concomitant]

REACTIONS (5)
  - Vomiting [None]
  - Treatment noncompliance [None]
  - Product physical consistency issue [None]
  - Retching [None]
  - Product use complaint [None]

NARRATIVE: CASE EVENT DATE: 20200722
